FAERS Safety Report 9687842 (Version 1)
Quarter: 2013Q4

REPORT INFORMATION
  Report Type: Spontaneous
  Country: GB (occurrence: None)
  Receive Date: 20131112
  Receipt Date: 20131112
  Transmission Date: 20140711
  Serious: Yes (Other)
  Sender: FDA-Public Use
  Company Number: AUR-APL-2013-09308

PATIENT
  Age: 75 Year
  Sex: Female
  Weight: 68 kg

DRUGS (3)
  1. GABAPENTIN [Suspect]
     Indication: PRODUCT USED FOR UNKNOWN INDICATION
  2. CO-CODAMOL (PANADEINE CO) [Concomitant]
  3. DOXAZOSIN (DOXAZOSIN) [Concomitant]

REACTIONS (6)
  - Dementia [None]
  - Depression [None]
  - Mood swings [None]
  - Amnesia [None]
  - Irritability [None]
  - Aggression [None]
